FAERS Safety Report 4592617-9 (Version None)
Quarter: 2005Q1

REPORT INFORMATION
  Report Type: 
  Country: None (occurrence: None)
  Receive Date: 20050222
  Receipt Date: 20050209
  Transmission Date: 20050727
  Serious: Yes (Hospitalization)
  Sender: FDA-Public Use
  Company Number: 2004095356

PATIENT
  Age: 75 Year
  Sex: Female
  Weight: 58 kg

DRUGS (3)
  1. GENOTROPIN [Suspect]
     Indication: HYPOPITUITARISM
     Dosage: 0.2 MG (0.2 MG, DAILY), SUBCUTANEOUS
     Route: 058
     Dates: start: 20020626
  2. HYDROCORTISONE (HYDROCORITSONE) [Concomitant]
  3. LEVOTHYROXINE SODIUM [Concomitant]

REACTIONS (10)
  - ABASIA [None]
  - ATRIAL FIBRILLATION [None]
  - BRAIN STEM INFARCTION [None]
  - CEREBROVASCULAR ACCIDENT [None]
  - DYSPHAGIA [None]
  - EXTENSOR PLANTAR RESPONSE [None]
  - FACIAL PALSY [None]
  - FACIAL PARESIS [None]
  - HEMIPARESIS [None]
  - MONOPLEGIA [None]
